FAERS Safety Report 21350275 (Version 1)
Quarter: 2022Q3

REPORT INFORMATION
  Report Type: Spontaneous
  Country: US (occurrence: US)
  Receive Date: 20220919
  Receipt Date: 20220919
  Transmission Date: 20221026
  Serious: No
  Sender: FDA-Public Use
  Company Number: US-REGENERON PHARMACEUTICALS, INC.-2022-057006

PATIENT
  Sex: Female

DRUGS (18)
  1. PRALUENT [Suspect]
     Active Substance: ALIROCUMAB
     Indication: Hypercholesterolaemia
     Dosage: 75 MG, Q2W
     Route: 058
     Dates: start: 20220407, end: 20220503
  2. albuterol HFA (VENTOLIN HFA) [Concomitant]
     Indication: Wheezing
     Dosage: 90 MCG/ACTUATION; 1-2 PUFFS EVERY 4 HOURS AS NEEDED
     Route: 055
     Dates: start: 20210525
  3. albuterol HFA (VENTOLIN HFA) [Concomitant]
     Indication: Dyspnoea
  4. XANAX [Concomitant]
     Active Substance: ALPRAZOLAM
     Indication: Anxiety
     Dosage: 0.5 MG TID AS NEEDED
     Route: 048
     Dates: start: 20220301, end: 20220412
  5. XANAX [Concomitant]
     Active Substance: ALPRAZOLAM
     Dosage: 0.5 MG TID AS NEEDED
     Route: 048
     Dates: start: 20220412
  6. aspirin 81 mg chewable tablet [Concomitant]
     Indication: Product used for unknown indication
     Dosage: 81 MG, QD
     Route: 048
     Dates: start: 20070108
  7. cholecalciferol, vitamin D3, 1,000 unit capsule [Concomitant]
     Indication: Product used for unknown indication
     Dosage: 1000 [IU], QD
     Route: 048
     Dates: start: 20151031
  8. PLAVIX [Concomitant]
     Active Substance: CLOPIDOGREL BISULFATE
     Indication: Product used for unknown indication
     Dosage: 75 MG, QD
     Route: 048
     Dates: start: 20211216, end: 20221216
  9. cyanocobalamin, vitamin B-12, (VITAMIN B12 - ORAL) [Concomitant]
     Indication: Product used for unknown indication
     Dosage: 4 GUMMIES DAILY
     Route: 048
  10. MOBIC [Concomitant]
     Active Substance: MELOXICAM
     Indication: Product used for unknown indication
     Dosage: 7.5 MG, QD, WITH FOOD
     Route: 048
     Dates: start: 20220302, end: 20220411
  11. MOBIC [Concomitant]
     Active Substance: MELOXICAM
     Dosage: 7.5 MG, QD, WITH FOOD
     Route: 048
     Dates: start: 20220411, end: 20220505
  12. TOPROL XL [Concomitant]
     Active Substance: METOPROLOL SUCCINATE
     Indication: Product used for unknown indication
     Dosage: 25 MG, QD
     Route: 048
     Dates: start: 20211221
  13. NITROGLYCERIN [Concomitant]
     Active Substance: NITROGLYCERIN
     Indication: Product used for unknown indication
     Dosage: 0.4 MG
     Route: 060
     Dates: start: 20101005
  14. omega-3 acid ethyl esters (LOVAZA) 1 g capsule [Concomitant]
     Indication: Product used for unknown indication
     Dosage: 3 1G CAPSILES DAILY, QD
     Route: 048
     Dates: start: 20080404
  15. ZOFRAN [Concomitant]
     Active Substance: ONDANSETRON HYDROCHLORIDE
     Indication: Nausea
     Dosage: 4 MG BID AS NEEEDED
     Route: 048
     Dates: start: 20211221
  16. ZOFRAN [Concomitant]
     Active Substance: ONDANSETRON HYDROCHLORIDE
     Indication: Vomiting
  17. pantoprazole (PROTONIX) DR tablet [Concomitant]
     Indication: Product used for unknown indication
     Dosage: 40 MG, QD
     Route: 048
     Dates: start: 20211221
  18. venlafaxine XR (EFFEXOR-XR) [Concomitant]
     Indication: Product used for unknown indication
     Dosage: 150 MG, QD
     Route: 048
     Dates: start: 20211122

REACTIONS (2)
  - Injection site mass [Not Recovered/Not Resolved]
  - Product dose omission issue [Unknown]

NARRATIVE: CASE EVENT DATE: 20220411
